FAERS Safety Report 15028741 (Version 1)
Quarter: 2018Q2

REPORT INFORMATION
  Report Type: Spontaneous
  Country: US (occurrence: US)
  Receive Date: 20180619
  Receipt Date: 20180619
  Transmission Date: 20180711
  Serious: Yes (Other)
  Sender: FDA-Public Use
  Company Number: US-SA-2018SA147516

PATIENT
  Age: 58 Year
  Sex: Female
  Weight: 84 kg

DRUGS (5)
  1. TAC [Concomitant]
     Active Substance: TRIAMCINOLONE ACETONIDE
  2. NEOSAR [Concomitant]
     Active Substance: CYCLOPHOSPHAMIDE
  3. DOXORUBICIN [Concomitant]
     Active Substance: DOXORUBICIN
  4. TAXOTERE [Suspect]
     Active Substance: DOCETAXEL
     Indication: BREAST CANCER
     Dosage: 185 MG, Q3W
     Dates: start: 20110726, end: 20110726
  5. TAXOTERE [Suspect]
     Active Substance: DOCETAXEL
     Dosage: 185 UNK
     Dates: start: 20110927, end: 20110927

REACTIONS (2)
  - Alopecia [Recovering/Resolving]
  - Psychological trauma [Unknown]
